FAERS Safety Report 5500392-6 (Version None)
Quarter: 2007Q4

REPORT INFORMATION
  Report Type: 
  Country: None (occurrence: None)
  Receive Date: 20071029
  Receipt Date: 20071019
  Transmission Date: 20080405
  Serious: Yes (Death, Hospitalization)
  Sender: FDA-Public Use
  Company Number: US-ROCHE-491920

PATIENT
  Sex: Female

DRUGS (3)
  1. BONIVA [Suspect]
     Indication: DRUG USE FOR UNKNOWN INDICATION
     Dosage: THE PATIENT TOOK BONIVA FOR 'NO MORE THAN 2 YEARS.'
     Route: 065
     Dates: start: 20041101, end: 20061104
  2. MORPHINE [Concomitant]
  3. UNKNOWN MEDICATION FOR PAIN [Concomitant]
     Indication: PAIN
     Dates: start: 20060201

REACTIONS (7)
  - ABDOMINAL PAIN [None]
  - BRAIN NEOPLASM MALIGNANT [None]
  - CARDIOVASCULAR DISORDER [None]
  - DEMYELINATION [None]
  - DIABETIC COMPLICATION [None]
  - EYE PAIN [None]
  - MOOD ALTERED [None]
